FAERS Safety Report 5691517-0 (Version None)
Quarter: 2008Q2

REPORT INFORMATION
  Report Type: 
  Country: None (occurrence: None)
  Receive Date: 20080402
  Receipt Date: 20080328
  Transmission Date: 20081010
  Serious: Yes (Hospitalization)
  Sender: FDA-Public Use
  Company Number: PHRM2008FR01130

PATIENT
  Age: 47 Year
  Sex: Female
  Weight: 68 kg

DRUGS (8)
  1. VOLTAREN [Suspect]
     Dosage: 50 MG, BID
     Route: 048
     Dates: start: 20071101, end: 20071227
  2. DETICENE [Suspect]
     Dosage: 250 MG/M2=410 MG/DAY
     Route: 042
     Dates: start: 20071107, end: 20071110
  3. DETICENE [Suspect]
     Dosage: 250 MG/M2 = 410 MG/DAY
     Route: 042
     Dates: start: 20071210, end: 20071213
  4. MS CONTIN [Concomitant]
  5. MOTILIUM [Concomitant]
  6. ZOPHREN [Concomitant]
  7. SEVREDOL [Concomitant]
  8. RIVOTRIL [Concomitant]

REACTIONS (4)
  - CONFUSIONAL STATE [None]
  - CONVULSION [None]
  - ENCEPHALITIS [None]
  - PYREXIA [None]
